FAERS Safety Report 5890110-4 (Version None)
Quarter: 2008Q3

REPORT INFORMATION
  Report Type: 
  Country: None (occurrence: None)
  Receive Date: 20080919
  Receipt Date: 20080910
  Transmission Date: 20090109
  Serious: Yes (Other)
  Sender: FDA-Public Use
  Company Number: DE-B.I. PHARMACEUTICALS,INC./RIDGEFIELD-2008-DE-05361GD

PATIENT
  Age: 39 Year
  Sex: Male

DRUGS (3)
  1. NEVIRAPINE [Suspect]
     Indication: HIV INFECTION
     Dates: start: 20020913
  2. ZIDOVUDINE [Suspect]
     Indication: HIV INFECTION
     Dates: start: 20000715
  3. LAMIVUDINE [Suspect]
     Indication: HIV INFECTION
     Dates: start: 20000715

REACTIONS (1)
  - HUMAN IMMUNODEFICIENCY VIRUS TRANSMISSION [None]
